FAERS Safety Report 16264055 (Version 1)
Quarter: 2019Q2

REPORT INFORMATION
  Report Type: Spontaneous
  Country: US (occurrence: US)
  Receive Date: 20190501
  Receipt Date: 20190501
  Transmission Date: 20190711
  Serious: No
  Sender: FDA-Public Use
  Company Number: None

PATIENT
  Age: 29 Year
  Sex: Male
  Weight: 67.5 kg

DRUGS (1)
  1. COPAXONE [Suspect]
     Active Substance: GLATIRAMER ACETATE
     Indication: MULTIPLE SCLEROSIS
     Dosage: ?          QUANTITY:1 INJECTION(S);?
     Route: 058
     Dates: start: 20190308, end: 20190427

REACTIONS (16)
  - Disturbance in attention [None]
  - Scratch [None]
  - Flushing [None]
  - Feeling hot [None]
  - Dizziness [None]
  - Nausea [None]
  - Chest discomfort [None]
  - Pruritus generalised [None]
  - Dysgeusia [None]
  - Vomiting [None]
  - Gastrooesophageal reflux disease [None]
  - Hyperhidrosis [None]
  - Chills [None]
  - Syncope [None]
  - Eye swelling [None]
  - Sensory disturbance [None]

NARRATIVE: CASE EVENT DATE: 20190426
